FAERS Safety Report 26065221 (Version 1)
Quarter: 2025Q4

REPORT INFORMATION
  Report Type: Spontaneous
  Country: US (occurrence: None)
  Receive Date: 20251119
  Receipt Date: 20251119
  Transmission Date: 20260118
  Serious: Yes (Hospitalization)
  Sender: FDA-CTU
  Company Number: None

PATIENT
  Sex: Male

DRUGS (4)
  1. LENALIDOMIDE [Suspect]
     Active Substance: LENALIDOMIDE
     Indication: Plasma cell myeloma in remission
     Dosage: FREQUENCY : DAILY;?
     Route: 048
     Dates: start: 20220617
  2. ASPIRIN [Concomitant]
     Active Substance: ASPIRIN
  3. LENALIDOMIDE [Concomitant]
     Active Substance: LENALIDOMIDE
  4. XGEVA  INJ [Concomitant]

REACTIONS (2)
  - Pneumonia [None]
  - Therapy interrupted [None]
